FAERS Safety Report 14962736 (Version 1)
Quarter: 2018Q2

REPORT INFORMATION
  Report Type: Spontaneous
  Country: US (occurrence: US)
  Receive Date: 20180510
  Receipt Date: 20180510
  Transmission Date: 20180711
  Serious: Yes (Hospitalization)
  Sender: FDA-Public Use
  Company Number: None

PATIENT
  Age: 69 Year
  Sex: Male

DRUGS (9)
  1. IMATINIB 400MG [Suspect]
     Active Substance: IMATINIB
     Route: 048
     Dates: start: 20150909
  2. LANTUS [Concomitant]
     Active Substance: INSULIN GLARGINE
  3. POT CL [Concomitant]
  4. FUROSEMIDE. [Concomitant]
     Active Substance: FUROSEMIDE
  5. MEXILETINE [Concomitant]
     Active Substance: MEXILETINE
  6. NOVOLOG [Concomitant]
     Active Substance: INSULIN ASPART
  7. SIMVASTATIN. [Concomitant]
     Active Substance: SIMVASTATIN
  8. METFORMIN [Concomitant]
     Active Substance: METFORMIN HYDROCHLORIDE
  9. SOTALOL. [Concomitant]
     Active Substance: SOTALOL

REACTIONS (1)
  - Hospitalisation [None]

NARRATIVE: CASE EVENT DATE: 20180430
